FAERS Safety Report 9997975 (Version 3)
Quarter: 2014Q2

REPORT INFORMATION
  Report Type: Report from Study
  Country: IT (occurrence: IT)
  Receive Date: 20140311
  Receipt Date: 20140401
  Transmission Date: 20141212
  Serious: Yes (Death, Hospitalization, Other)
  Sender: FDA-Public Use
  Company Number: IT-PFIZER INC-2014070781

PATIENT
  Age: 84 Year
  Sex: Male

DRUGS (10)
  1. SOLU-MEDROL [Suspect]
     Indication: LUNG DISORDER
     Dosage: 120 MG, 1X/DAY
     Route: 042
     Dates: start: 20140117
  2. DELTACORTENE [Suspect]
     Indication: LUNG DISORDER
     Dosage: 12.5 MG, 1X/DAY
     Route: 048
     Dates: start: 20140111, end: 20140117
  3. TARGIN [Concomitant]
     Dosage: 5/25MG TWICE DAILY
  4. CLEXANE [Concomitant]
     Dosage: 6000 IU, 2X/DAY
  5. LEVOXACIN [Concomitant]
     Dosage: 500 MG, DAILY
     Route: 042
  6. PANTORC [Concomitant]
     Dosage: 40 MG, DAILY
     Route: 042
     Dates: start: 20140117
  7. ELOPRAM [Concomitant]
     Dosage: 8 GTT, DAILY
     Route: 048
  8. SERETIDE DISKUS [Concomitant]
     Dosage: 500/50 2 PUFF TWICE DAILY
  9. LASIX FOR INJECTION [Concomitant]
     Dosage: 20 MG, DAILY
     Route: 042
     Dates: start: 20140114
  10. LANSOPRAZOLE [Concomitant]
     Dosage: 30 MG, UNK
     Dates: end: 20140116

REACTIONS (3)
  - Respiratory failure [Fatal]
  - Pulmonary embolism [Fatal]
  - Diabetes mellitus [Unknown]
